FAERS Safety Report 23932082 (Version 1)
Quarter: 2024Q2

REPORT INFORMATION
  Report Type: Spontaneous
  Country: US (occurrence: None)
  Receive Date: 20240531
  Receipt Date: 20240531
  Transmission Date: 20240717
  Serious: Yes (Hospitalization)
  Sender: FDA-Public Use
  Company Number: None

PATIENT
  Age: 34 Year
  Sex: Male

DRUGS (17)
  1. AMBRISENTAN [Suspect]
     Active Substance: AMBRISENTAN
     Dosage: FREQUENCY : DAILY;?
     Route: 048
     Dates: start: 20140826
  2. SILDENAFIL [Concomitant]
  3. DIGOXIN [Concomitant]
     Active Substance: DIGOXIN
  4. ALLOPURINOL [Concomitant]
     Active Substance: ALLOPURINOL
  5. ALBUTEROL HFA [Concomitant]
  6. METOLAZONE [Concomitant]
  7. TORSEMIDE [Concomitant]
     Active Substance: TORSEMIDE
  8. POTASSIUM CHLORIDE [Concomitant]
     Active Substance: POTASSIUM CHLORIDE
  9. breyna HFA [Concomitant]
  10. triamcinolone top cream [Concomitant]
  11. COLCHICINE [Concomitant]
     Active Substance: COLCHICINE
  12. WARFARIN [Concomitant]
     Active Substance: WARFARIN
  13. GABAPENTIN [Concomitant]
     Active Substance: GABAPENTIN
  14. EPLERENONE [Concomitant]
     Active Substance: EPLERENONE
  15. METOPROLOL [Concomitant]
     Active Substance: METOPROLOL
  16. alvesco HFA [Concomitant]
  17. oxygen intranasal [Concomitant]

REACTIONS (2)
  - Influenza [None]
  - Dyspnoea [None]

NARRATIVE: CASE EVENT DATE: 20240425
